FAERS Safety Report 7383761-1 (Version None)
Quarter: 2011Q1

REPORT INFORMATION
  Report Type: 
  Country: None (occurrence: None)
  Receive Date: 20110330
  Receipt Date: 20110328
  Transmission Date: 20110831
  Serious: Yes (Death)
  Sender: FDA-Public Use
  Company Number: NL-ROCHE-767850

PATIENT

DRUGS (5)
  1. PANTOPRAZOL [Concomitant]
  2. METOCLOPRAMIDE [Concomitant]
  3. CISPLATIN [Suspect]
     Indication: GASTRIC CANCER
     Dosage: LAST DOSE PRIOR TO SAE 03 JUNE 2010, CUMULATIVE DOSE: 240 MG
     Route: 042
     Dates: start: 20100513
  4. CAPECITABINE [Suspect]
     Indication: GASTRIC CANCER
     Dosage: LAST DOSE PRIOR TO SAE 16 JUNE 2010, CUMULATIVE DOSE: 4000 MG/DAY
     Route: 048
     Dates: start: 20100513
  5. EPIRUBICIN [Suspect]
     Indication: GASTRIC CANCER
     Dosage: LAST DOSE PRIOR TO SAE 03 JUNE 2010, CUMULATIVE DOSE: 200 MG
     Route: 042
     Dates: start: 20100513

REACTIONS (1)
  - SEPSIS [None]
